FAERS Safety Report 12876219 (Version 2)
Quarter: 2016Q4

REPORT INFORMATION
  Report Type: Spontaneous
  Country: EE (occurrence: EE)
  Receive Date: 20161024
  Receipt Date: 20161110
  Transmission Date: 20170207
  Serious: Yes (Death)
  Sender: FDA-Public Use
  Company Number: EE-ROCHE-1843537

PATIENT
  Age: 47 Year
  Sex: Male

DRUGS (12)
  1. MABTHERA [Suspect]
     Active Substance: RITUXIMAB
     Indication: LYMPHOMA
  2. VINCRISTINE [Concomitant]
     Active Substance: VINCRISTINE
     Dosage: TOTAL 6 CYCLES
     Route: 042
  3. IFOSFAMIDE. [Concomitant]
     Active Substance: IFOSFAMIDE
     Dosage: TOTAL 3 CYCLES
     Route: 042
  4. VFEND [Concomitant]
     Active Substance: VORICONAZOLE
     Indication: SEPSIS
  5. METHOTREXATE (METHOTREXATE SODIUM) [Concomitant]
     Active Substance: METHOTREXATE SODIUM
     Dosage: TOTAL 6 CYCLES
     Route: 042
  6. ETOPOSIDE. [Concomitant]
     Active Substance: ETOPOSIDE
     Dosage: TOTAL 3 CYCLES
     Route: 042
  7. CYTARABINE. [Concomitant]
     Active Substance: CYTARABINE
     Dosage: TOTAL 3 CYCLES
     Route: 042
  8. ACICLOVIR [Concomitant]
     Active Substance: ACYCLOVIR
  9. MABTHERA [Suspect]
     Active Substance: RITUXIMAB
     Indication: BURKITT^S LYMPHOMA
     Dosage: TOTAL 8 CYCLES
     Route: 042
     Dates: start: 20150831, end: 20160307
  10. SANORAL [Concomitant]
  11. CANCIDAS [Concomitant]
     Active Substance: CASPOFUNGIN ACETATE
     Indication: SEPSIS
  12. CYCLOPHOSPHAMIDE. [Concomitant]
     Active Substance: CYCLOPHOSPHAMIDE
     Dosage: TOTAL 3 CYCLES
     Route: 042

REACTIONS (2)
  - Progressive multifocal leukoencephalopathy [Fatal]
  - Neurological symptom [Fatal]

NARRATIVE: CASE EVENT DATE: 201607
